FAERS Safety Report 22020499 (Version 1)
Quarter: 2023Q1

REPORT INFORMATION
  Report Type: Spontaneous
  Country: CA (occurrence: CA)
  Receive Date: 20230222
  Receipt Date: 20230222
  Transmission Date: 20230417
  Serious: Yes (Death, Other)
  Sender: FDA-Public Use
  Company Number: CA-SA-2023SA057760

PATIENT
  Age: 76 Year
  Sex: Male

DRUGS (1)
  1. ALEMTUZUMAB [Suspect]
     Active Substance: ALEMTUZUMAB
     Indication: T-cell prolymphocytic leukaemia
     Dosage: UNK

REACTIONS (11)
  - Multiple organ dysfunction syndrome [Fatal]
  - Pancytopenia [Fatal]
  - Diffuse large B-cell lymphoma [Unknown]
  - Off label use [Unknown]
  - Epstein-Barr virus associated lymphoma [Unknown]
  - Hepatic lesion [Unknown]
  - Splenic lesion [Unknown]
  - Confusional state [Unknown]
  - Decreased activity [Unknown]
  - Cytomegalovirus viraemia [Unknown]
  - Fungal infection [Unknown]
